FAERS Safety Report 8377838-1 (Version None)
Quarter: 2012Q2

REPORT INFORMATION
  Report Type: 
  Country: None (occurrence: None)
  Receive Date: 20120522
  Receipt Date: 20120518
  Transmission Date: 20120825
  Serious: Yes (Death, Other)
  Sender: FDA-Public Use
  Company Number: PHHY2010JP10142

PATIENT
  Sex: Male

DRUGS (10)
  1. TASIGNA [Suspect]
     Dosage: 400 MG, UNK
     Route: 048
     Dates: start: 20090709, end: 20090721
  2. TASIGNA [Suspect]
     Dosage: 800 MG, TIW
     Route: 048
     Dates: start: 20090725, end: 20090916
  3. TASIGNA [Suspect]
     Dosage: 800 MG, FOUR TIMES A WEEK
     Route: 048
     Dates: start: 20090722, end: 20090724
  4. LANSOPRAZOLE [Concomitant]
     Dosage: 15 MG, UNK
     Route: 048
  5. NORVASC [Concomitant]
     Dosage: 5 MG, UNK
     Route: 048
  6. LASIX [Concomitant]
     Dosage: 80 MG, UNK
     Route: 048
  7. TASIGNA [Suspect]
     Indication: CHRONIC MYELOID LEUKAEMIA
     Dosage: 200 MG, UNK
     Route: 048
     Dates: start: 20090629, end: 20090708
  8. SUCRALFATE [Concomitant]
     Dosage: 3 MG, UNK
     Route: 048
  9. ALLORINE [Concomitant]
     Dosage: 100 MG, UNK
     Route: 048
  10. TASIGNA [Suspect]
     Dosage: 800 MG, FOUR TIMES A WEEK
     Dates: start: 20090917, end: 20100212

REACTIONS (2)
  - CEREBRAL INFARCTION [None]
  - PLATELET COUNT DECREASED [None]
